FAERS Safety Report 8993245 (Version 5)
Quarter: 2013Q2

REPORT INFORMATION
  Report Type: Spontaneous
  Country: US (occurrence: US)
  Receive Date: 20130102
  Receipt Date: 20130625
  Transmission Date: 20140414
  Serious: No
  Sender: FDA-Public Use
  Company Number: US-PFIZER INC-2012333567

PATIENT
  Age: 19 Year
  Sex: Female
  Weight: 47.62 kg

DRUGS (6)
  1. ALPRAZOLAM [Suspect]
     Dosage: 0.5 MG IN MORNING, 0.25 MG AS NEEDED IN AFTERNOON AND 0.5 MG AT NIGHT
     Dates: start: 201111
  2. ALPRAZOLAM [Suspect]
     Dosage: 0.5 MG, UNK
     Dates: start: 20121229, end: 20121229
  3. PEXEVA [Suspect]
     Indication: ANXIETY
     Dosage: 20 MG, DAILY
     Dates: start: 201206
  4. PEXEVA [Suspect]
     Indication: SLEEP DISORDER
  5. REMERON [Concomitant]
     Indication: ANXIETY
     Dosage: 0.15 MG, UNK
     Dates: start: 201206
  6. REMERON [Concomitant]
     Indication: SLEEP DISORDER

REACTIONS (4)
  - Product size issue [Unknown]
  - Drug ineffective [Unknown]
  - Somnolence [Not Recovered/Not Resolved]
  - Dizziness [Not Recovered/Not Resolved]
